FAERS Safety Report 8334471-5 (Version None)
Quarter: 2012Q2

REPORT INFORMATION
  Report Type: 
  Country: None (occurrence: None)
  Receive Date: 20120503
  Receipt Date: 20120425
  Transmission Date: 20120825
  Serious: Yes (Death, Hospitalization, Other)
  Sender: FDA-Public Use
  Company Number: PHHY2012FR013812

PATIENT
  Sex: Male

DRUGS (5)
  1. LYRICA [Concomitant]
  2. ASPIRIN [Concomitant]
  3. FLECAINIDE ACETATE [Concomitant]
  4. OSLIF BREEZHALER [Suspect]
     Indication: RESPIRATORY FAILURE
     Dosage: 150 UG, DAILY
     Dates: start: 20111216, end: 20120112
  5. CLONAZEPAM [Concomitant]

REACTIONS (11)
  - CEREBRAL ISCHAEMIA [None]
  - CARDIAC ARREST [None]
  - LOSS OF CONSCIOUSNESS [None]
  - RESPIRATORY ACIDOSIS [None]
  - CHEST PAIN [None]
  - PAIN IN EXTREMITY [None]
  - ARRHYTHMIA [None]
  - PAIN IN JAW [None]
  - CARDIO-RESPIRATORY ARREST [None]
  - MYOCARDIAL INFARCTION [None]
  - BUNDLE BRANCH BLOCK LEFT [None]
